APPROVED DRUG PRODUCT: VISINE
Active Ingredient: NAPHAZOLINE HYDROCHLORIDE; PHENIRAMINE MALEATE
Strength: 0.025%;0.3%
Dosage Form/Route: SOLUTION/DROPS;OPHTHALMIC
Application: N020485 | Product #001
Applicant: KENVUE BRANDS LLC
Approved: Jan 31, 1996 | RLD: Yes | RS: Yes | Type: OTC